FAERS Safety Report 9534787 (Version 2)
Quarter: 2013Q3

REPORT INFORMATION
  Report Type: Spontaneous
  Country: US (occurrence: US)
  Receive Date: 20130918
  Receipt Date: 20130918
  Transmission Date: 20140515
  Serious: No
  Sender: FDA-Public Use
  Company Number: US-PURDUE-USA-2011-0073183

PATIENT
  Age: 60 Year
  Sex: Female
  Weight: 92.06 kg

DRUGS (11)
  1. BUTRANS [Suspect]
     Indication: BACK PAIN
     Dosage: 10 MCG, Q1H
     Route: 062
     Dates: start: 201103
  2. BUTRANS [Suspect]
     Indication: ARTHRALGIA
     Dosage: 5 MCG, Q1H
  3. VALTREX [Concomitant]
     Indication: PRODUCT USED FOR UNKNOWN INDICATION
     Dosage: 1 GRAM, DAILY
  4. CELEBREX [Concomitant]
     Indication: PRODUCT USED FOR UNKNOWN INDICATION
     Dosage: 200 MG, DAILY
  5. MAXZIDE [Concomitant]
     Indication: PRODUCT USED FOR UNKNOWN INDICATION
     Dosage: 1 TABLET, 75/50MG DAILY
  6. ZOLOFT [Concomitant]
     Indication: PRODUCT USED FOR UNKNOWN INDICATION
     Dosage: 50 MG, DAILY
  7. PANTOPRAZOLE [Concomitant]
     Indication: PRODUCT USED FOR UNKNOWN INDICATION
     Dosage: 40 MG, DAILY
  8. NORCO [Concomitant]
     Indication: PAIN
     Dosage: 10/325 UNK 2-4 TABS DAILY
  9. DULCOLAX                           /00064401/ [Concomitant]
     Indication: PRODUCT USED FOR UNKNOWN INDICATION
     Dosage: 100 MG, DAILY
  10. VALIUM                             /00017001/ [Concomitant]
     Indication: INSOMNIA
     Dosage: 5 MG OCCASIONALLY ONE TIME PER WEEK,UNK
  11. VALIUM                             /00017001/ [Concomitant]
     Indication: MUSCLE SPASMS

REACTIONS (17)
  - Cold sweat [Unknown]
  - Drug withdrawal syndrome [Not Recovered/Not Resolved]
  - Extra dose administered [Unknown]
  - Wrong technique in drug usage process [Unknown]
  - Drug effect delayed [Not Recovered/Not Resolved]
  - Drug effect decreased [Not Recovered/Not Resolved]
  - Drug ineffective [Unknown]
  - Product adhesion issue [Not Recovered/Not Resolved]
  - Application site pruritus [Not Recovered/Not Resolved]
  - Pain [Unknown]
  - Tremor [Unknown]
  - Malaise [Unknown]
  - Muscle spasms [Unknown]
  - Hyperhidrosis [Unknown]
  - Asthenia [Unknown]
  - Disorientation [Unknown]
  - Insomnia [Unknown]
